FAERS Safety Report 14247336 (Version 1)
Quarter: 2017Q4

REPORT INFORMATION
  Report Type: Spontaneous
  Country: US (occurrence: US)
  Receive Date: 20171204
  Receipt Date: 20171204
  Transmission Date: 20180321
  Serious: Yes (Death, Hospitalization)
  Sender: FDA-Public Use
  Company Number: US-ASTRAZENECA-2017SF22283

PATIENT
  Age: 44 Year
  Sex: Female

DRUGS (5)
  1. CODEINE [Suspect]
     Active Substance: CODEINE
     Route: 048
  2. ZOLPIDEM [Suspect]
     Active Substance: ZOLPIDEM\ZOLPIDEM TARTRATE
     Route: 048
  3. ACETAMINOPHEN/BUTALBITAL/CAFFEINE [Suspect]
     Active Substance: ACETAMINOPHEN\BUTALBITAL\CAFFEINE
     Route: 048
  4. QUETIAPINE. [Suspect]
     Active Substance: QUETIAPINE
     Route: 048
  5. GABAPENTIN. [Suspect]
     Active Substance: GABAPENTIN
     Route: 048

REACTIONS (4)
  - Toxicity to various agents [Fatal]
  - Completed suicide [Fatal]
  - Cardiac arrest [Unknown]
  - Respiratory arrest [Unknown]
